FAERS Safety Report 17393293 (Version 1)
Quarter: 2020Q1

REPORT INFORMATION
  Report Type: Spontaneous
  Country: US (occurrence: US)
  Receive Date: 20200207
  Receipt Date: 20200207
  Transmission Date: 20200409
  Serious: No
  Sender: FDA-Public Use
  Company Number: US-MYLANLABS-2020M1011067

PATIENT
  Sex: Female
  Weight: 91 kg

DRUGS (1)
  1. SERTRALINE [Suspect]
     Active Substance: SERTRALINE HYDROCHLORIDE
     Indication: DEPRESSION
     Dosage: UNK
     Route: 065

REACTIONS (6)
  - Palpitations [Unknown]
  - Obsessive thoughts [Unknown]
  - Drug ineffective [Unknown]
  - Initial insomnia [Unknown]
  - Anxiety [Unknown]
  - Panic reaction [Unknown]
